FAERS Safety Report 8275404-X (Version None)
Quarter: 2012Q2

REPORT INFORMATION
  Report Type: 
  Country: None (occurrence: None)
  Receive Date: 20120411
  Receipt Date: 20120403
  Transmission Date: 20120825
  Serious: Yes (Disabling)
  Sender: FDA-Public Use
  Company Number: GB-MERCK-1204GBR00013

PATIENT
  Age: 82 Year
  Sex: Male
  Weight: 70 kg

DRUGS (3)
  1. DRONEDARONE HCL [Suspect]
     Route: 065
     Dates: start: 20111214, end: 20120113
  2. CANDESARTAN [Concomitant]
     Route: 065
     Dates: start: 20111214, end: 20120208
  3. ZOCOR [Suspect]
     Route: 048

REACTIONS (2)
  - PAIN IN EXTREMITY [None]
  - MYALGIA [None]
